FAERS Safety Report 5636610-3 (Version None)
Quarter: 2008Q1

REPORT INFORMATION
  Report Type: 
  Country: None (occurrence: None)
  Receive Date: 20080225
  Receipt Date: 20080211
  Transmission Date: 20080703
  Serious: Yes (Other)
  Sender: FDA-Public Use
  Company Number: SP-200000825

PATIENT
  Age: 26 Year
  Sex: Female

DRUGS (7)
  1. REMICADE [Suspect]
     Route: 041
     Dates: start: 20000414
  2. REMICADE [Suspect]
     Route: 041
     Dates: start: 20000414
  3. REMICADE [Suspect]
     Indication: CROHN'S DISEASE
     Route: 041
     Dates: start: 20000414
  4. PREDNISONE TAB [Concomitant]
     Route: 065
  5. MESALAMINE [Concomitant]
     Route: 065
  6. AZATHIOPRINE [Concomitant]
     Route: 065
  7. METRONIDAZOLE HCL [Concomitant]
     Route: 065

REACTIONS (3)
  - CROHN'S DISEASE [None]
  - PREGNANCY [None]
  - PREMATURE LABOUR [None]
